FAERS Safety Report 4801716-5 (Version None)
Quarter: 2005Q3

REPORT INFORMATION
  Report Type: 
  Country: None (occurrence: None)
  Receive Date: 20050929
  Receipt Date: 20050711
  Transmission Date: 20060218
  Serious: No
  Sender: FDA-Public Use
  Company Number: 05P-163-0305440-00

PATIENT
  Age: 81 Year
  Sex: Male
  Weight: 83.4619 kg

DRUGS (9)
  1. HUMIRA [Suspect]
     Indication: RHEUMATOID ARTHRITIS
     Dosage: 40 MG, 1 IN 2 WK, SUBCUTANEOUS
     Route: 058
     Dates: start: 20040101, end: 20050101
  2. HUMIRA [Suspect]
     Indication: RHEUMATOID ARTHRITIS
     Dosage: 40 MG, 1 IN 2 WK, SUBCUTANEOUS
     Route: 058
     Dates: start: 20050401, end: 20050621
  3. METOPROLOL TARTRATE [Concomitant]
  4. FOSINOPRIL SODIUM [Concomitant]
  5. CLOPIDOGREL BISULFATE [Concomitant]
  6. NIFEDIPINE [Concomitant]
  7. GLIPIZIDE [Concomitant]
  8. ZOCOR [Concomitant]
  9. ASPIRIN [Concomitant]

REACTIONS (2)
  - CARDIAC FAILURE [None]
  - PYREXIA [None]
